FAERS Safety Report 5767396-X (Version None)
Quarter: 2008Q2

REPORT INFORMATION
  Report Type: 
  Country: None (occurrence: None)
  Receive Date: 20080612
  Receipt Date: 20080609
  Transmission Date: 20081010
  Serious: Yes (Other)
  Sender: FDA-Public Use
  Company Number: D0056944A

PATIENT
  Age: 53 Year
  Sex: Female

DRUGS (14)
  1. ARIXTRA [Suspect]
     Indication: THROMBOSIS PROPHYLAXIS
     Dosage: 2.5MG PER DAY
     Route: 058
     Dates: start: 20070801, end: 20080415
  2. CLEXANE [Concomitant]
     Indication: THROMBOSIS PROPHYLAXIS
     Route: 058
     Dates: start: 20061218, end: 20070101
  3. GABAPENTIN [Concomitant]
     Dosage: 1600MG PER DAY
     Route: 048
  4. SYNTESTAN [Concomitant]
     Dosage: 2.5MG PER DAY
     Route: 048
  5. NEXIUM [Concomitant]
     Dosage: 40MG PER DAY
     Route: 065
  6. DELIX [Concomitant]
     Route: 048
  7. LORA-LICH [Concomitant]
     Route: 048
  8. KETOF [Concomitant]
     Route: 048
  9. VENTILASTIN NOVOLIZER [Concomitant]
     Route: 055
  10. HUMAN INSULIN [Concomitant]
     Route: 065
  11. FUROSEMIDE [Concomitant]
     Route: 065
  12. DIPYRONE INJ [Concomitant]
     Route: 065
  13. TRAMADOL HCL [Concomitant]
     Route: 058
  14. BRICANYL [Concomitant]
     Route: 058

REACTIONS (12)
  - ANGINA PECTORIS [None]
  - ANTIPHOSPHOLIPID SYNDROME [None]
  - ARTHRALGIA [None]
  - CARDIAC DISORDER [None]
  - DEEP VEIN THROMBOSIS [None]
  - DIABETES MELLITUS INADEQUATE CONTROL [None]
  - DIARRHOEA [None]
  - FIBROMYALGIA [None]
  - HYPERTENSION [None]
  - MYALGIA [None]
  - NAUSEA [None]
  - VOMITING [None]
